FAERS Safety Report 19865727 (Version 1)
Quarter: 2021Q3

REPORT INFORMATION
  Report Type: Spontaneous
  Country: CA (occurrence: CA)
  Receive Date: 20210921
  Receipt Date: 20210921
  Transmission Date: 20211014
  Serious: Yes (Life-Threatening, Hospitalization)
  Sender: FDA-Public Use
  Company Number: CA-TEVA-2021-CA-1953540

PATIENT
  Sex: Male
  Weight: 19 kg

DRUGS (3)
  1. ESCITALOPRAM [Suspect]
     Active Substance: ESCITALOPRAM OXALATE
     Indication: ANXIETY
     Dosage: 5 MILLIGRAM DAILY;
     Route: 048
  2. BIPHENTIN [Concomitant]
     Active Substance: METHYLPHENIDATE
  3. RISPERIDONE. [Suspect]
     Active Substance: RISPERIDONE
     Indication: OPPOSITIONAL DEFIANT DISORDER
     Dosage: 1 MILLIGRAM DAILY;
     Route: 048

REACTIONS (1)
  - Serotonin syndrome [Recovered/Resolved]
